FAERS Safety Report 13559308 (Version 1)
Quarter: 2017Q2

REPORT INFORMATION
  Report Type: Spontaneous
  Country: GB (occurrence: GB)
  Receive Date: 20170518
  Receipt Date: 20170518
  Transmission Date: 20170830
  Serious: Yes (Other)
  Sender: FDA-Public Use
  Company Number: GB-JNJFOC-20170509344

PATIENT
  Age: 19 Year
  Sex: Female
  Weight: 66.67 kg

DRUGS (1)
  1. CILEST [Suspect]
     Active Substance: ETHINYL ESTRADIOL\NORGESTIMATE
     Indication: OVARIAN CYST
     Route: 048
     Dates: start: 201603

REACTIONS (7)
  - Adnexa uteri pain [Unknown]
  - Dysmenorrhoea [Not Recovered/Not Resolved]
  - Uterine pain [Unknown]
  - Vaginal discharge [Not Recovered/Not Resolved]
  - Product use in unapproved indication [Unknown]
  - Off label use [Unknown]
  - Menstruation irregular [Not Recovered/Not Resolved]
